FAERS Safety Report 6428124-8 (Version None)
Quarter: 2009Q4

REPORT INFORMATION
  Report Type: 
  Country: None (occurrence: None)
  Receive Date: 20091105
  Receipt Date: 20091029
  Transmission Date: 20100525
  Serious: Yes (Other)
  Sender: FDA-Public Use
  Company Number: US-ELI_LILLY_AND_COMPANY-US200910007536

PATIENT
  Sex: Female

DRUGS (16)
  1. HUMULIN N [Suspect]
     Dosage: UNK, UNK
     Dates: start: 19790101
  2. HUMULIN N [Suspect]
     Dates: start: 19790101
  3. HUMULIN R [Suspect]
     Dosage: UNK, UNK
     Dates: start: 19790101
  4. HUMULIN R [Suspect]
     Dates: start: 19790101
  5. TOPROL-XL [Concomitant]
  6. AVALIDE [Concomitant]
  7. LYRICA [Concomitant]
  8. TRAZODONE HCL [Concomitant]
     Dosage: UNK, EACH EVENING
  9. GLIPIZIDE [Concomitant]
  10. MULTI-VITAMIN [Concomitant]
  11. CINNAMON [Concomitant]
  12. ALPHA LIPOIC ACID [Concomitant]
  13. SELENIUM [Concomitant]
  14. FOLIC ACID [Concomitant]
  15. CO-Q10 [Concomitant]
  16. ASCORBIC ACID [Concomitant]

REACTIONS (7)
  - EYE DISORDER [None]
  - EYE HAEMORRHAGE [None]
  - EYE OPERATION [None]
  - FLATULENCE [None]
  - SCOTOMA [None]
  - VISUAL ACUITY REDUCED [None]
  - VISUAL FIELD DEFECT [None]
